FAERS Safety Report 21535976 (Version 1)
Quarter: 2022Q4

REPORT INFORMATION
  Report Type: Spontaneous
  Country: US (occurrence: US)
  Receive Date: 20221101
  Receipt Date: 20221101
  Transmission Date: 20230113
  Serious: No
  Sender: FDA-Public Use
  Company Number: US-AMGEN-USASP2022181749

PATIENT
  Age: 6 Year
  Sex: Female

DRUGS (3)
  1. BEVACIZUMAB [Suspect]
     Active Substance: BEVACIZUMAB
     Indication: Li-Fraumeni syndrome
     Dosage: UNK
     Route: 065
  2. IRINOTECAN [Concomitant]
     Active Substance: IRINOTECAN
     Indication: Li-Fraumeni syndrome
     Dosage: UNK
  3. TEMOZOLOMIDE CLONMEL [Concomitant]
     Indication: Li-Fraumeni syndrome
     Dosage: UNK

REACTIONS (1)
  - Off label use [Unknown]
